FAERS Safety Report 24121189 (Version 1)
Quarter: 2024Q3

REPORT INFORMATION
  Report Type: Report from Study
  Country: CA (occurrence: CA)
  Receive Date: 20240722
  Receipt Date: 20240722
  Transmission Date: 20241016
  Serious: Yes (Hospitalization, Other)
  Sender: SANDOZ
  Company Number: CA-SANDOZ-NVSC2022CA175416

PATIENT
  Age: 58 Year
  Sex: Male

DRUGS (5)
  1. HYRIMOZ [Suspect]
     Active Substance: ADALIMUMAB-ADAZ
     Dosage: 40MG EVERY 2 WEEKS;EVERY TWO WEEKS
     Route: 058
     Dates: start: 20220623
  2. HYRIMOZ [Suspect]
     Active Substance: ADALIMUMAB-ADAZ
     Indication: Crohn^s disease
     Dosage: 40 MG
     Route: 058
     Dates: start: 20220623
  3. HYRIMOZ [Suspect]
     Active Substance: ADALIMUMAB-ADAZ
     Dosage: 40 MG
     Route: 058
     Dates: start: 20220804
  4. HYRIMOZ [Suspect]
     Active Substance: ADALIMUMAB-ADAZ
     Dosage: UNK
     Route: 065
  5. CORTISONE [Concomitant]
     Active Substance: CORTISONE
     Indication: Product used for unknown indication
     Dosage: UNK, (DECREASING DOSE)
     Route: 065

REACTIONS (9)
  - Blindness transient [Recovered/Resolved]
  - Bile duct stone [Not Recovered/Not Resolved]
  - Cholelithiasis [Unknown]
  - Infection [Not Recovered/Not Resolved]
  - Road traffic accident [Unknown]
  - Paraesthesia [Unknown]
  - Headache [Unknown]
  - SARS-CoV-2 test positive [Not Recovered/Not Resolved]
  - General physical health deterioration [Unknown]

NARRATIVE: CASE EVENT DATE: 20220901
